FAERS Safety Report 10036465 (Version 5)
Quarter: 2017Q4

REPORT INFORMATION
  Report Type: Report from Study
  Country: JP (occurrence: JP)
  Receive Date: 20140326
  Receipt Date: 20171117
  Transmission Date: 20180320
  Serious: Yes (Hospitalization)
  Sender: FDA-Public Use
  Company Number: PHHO2014JP003869

PATIENT
  Age: 59 Year
  Sex: Male
  Weight: 86 kg

DRUGS (14)
  1. REBAMIPIDE [Concomitant]
     Active Substance: REBAMIPIDE
     Indication: GASTRIC ULCER
     Dosage: UNK
     Route: 048
     Dates: start: 20121202
  2. FLUMETHOLON [Concomitant]
     Active Substance: FLUOROMETHOLONE
     Indication: PROPHYLAXIS
     Dosage: UNK, OP
     Route: 047
     Dates: start: 20100121
  3. GLIVEC [Suspect]
     Active Substance: IMATINIB MESYLATE
     Dosage: UNK
     Route: 048
     Dates: start: 20140319
  4. BIOFERMIN [Concomitant]
     Active Substance: BACILLUS SUBTILIS\LACTOBACILLUS ACIDOPHILUS\STREPTOCOCCUS FAECAIS
     Indication: DIARRHOEA
     Dosage: UNK
     Route: 048
     Dates: start: 20110916
  5. MAINTATE [Suspect]
     Active Substance: BISOPROLOL FUMARATE
     Indication: VENTRICULAR EXTRASYSTOLES
     Dosage: 2.5 MG, QD
     Route: 048
     Dates: start: 20110131
  6. ALFAROL [Concomitant]
     Active Substance: ALFACALCIDOL
     Indication: PRODUCT USED FOR UNKNOWN INDICATION
     Dosage: 3 UG, QD
     Route: 048
     Dates: start: 19930107
  7. HYALEIN [Concomitant]
     Active Substance: HYALURONATE SODIUM
     Indication: EYE DISCHARGE
     Dosage: UNK, OP
     Route: 047
     Dates: start: 20131004
  8. COR TYZINE [Concomitant]
     Indication: EYELID PTOSIS
     Dosage: UNK IN
     Route: 045
     Dates: start: 20101028
  9. GLIVEC [Suspect]
     Active Substance: IMATINIB MESYLATE
     Dosage: 800 MG, QD
     Route: 048
     Dates: start: 20140411
  10. THYRADIN [Concomitant]
     Active Substance: LEVOTHYROXINE
     Indication: THYROID HORMONE REPLACEMENT THERAPY
     Dosage: 50 UG, QD
     Route: 048
     Dates: start: 20120813
  11. GLIVEC [Suspect]
     Active Substance: IMATINIB MESYLATE
     Indication: CHRONIC MYELOID LEUKAEMIA
     Dosage: 800 MG, QD
     Route: 048
     Dates: start: 20071206, end: 20140313
  12. PARIET [Suspect]
     Active Substance: RABEPRAZOLE SODIUM
     Indication: GASTRIC ULCER
     Dosage: 50 MG, QD
     Route: 048
     Dates: start: 20100917
  13. LOXONIN [Suspect]
     Active Substance: LOXOPROFEN SODIUM
     Indication: INTERVERTEBRAL DISC PROTRUSION
     Dosage: UNK
     Route: 048
     Dates: start: 20120330
  14. CRAVIT [Concomitant]
     Active Substance: LEVOFLOXACIN
     Indication: CONJUNCTIVAL HAEMORRHAGE
     Dosage: UNK,OP
     Route: 047
     Dates: start: 20100121

REACTIONS (33)
  - Skin erosion [Recovered/Resolved]
  - Conjunctival haemorrhage [Not Recovered/Not Resolved]
  - Conjunctival hyperaemia [Recovered/Resolved]
  - Back pain [Recovered/Resolved]
  - Dyspepsia [Recovered/Resolved]
  - Gastroenteritis [Recovered/Resolved]
  - Epigastric discomfort [Recovered/Resolved]
  - Eyelid oedema [Recovered/Resolved]
  - Eye discharge [Not Recovered/Not Resolved]
  - Eczema asteatotic [Recovered/Resolved]
  - Hypertrophic cardiomyopathy [Not Recovered/Not Resolved]
  - Diarrhoea [Recovered/Resolved]
  - Nasopharyngitis [Recovered/Resolved]
  - Gastroenteritis [Recovered/Resolved]
  - Renal impairment [Recovered/Resolved]
  - Epigastric discomfort [Recovered/Resolved]
  - Ventricular extrasystoles [Not Recovered/Not Resolved]
  - Gastric ulcer [Not Recovered/Not Resolved]
  - Diarrhoea [Recovered/Resolved]
  - Nasopharyngitis [Recovered/Resolved]
  - Diarrhoea [Not Recovered/Not Resolved]
  - Retinal tear [Recovered/Resolved]
  - Diarrhoea [Recovered/Resolved]
  - Haemorrhoids [Recovered/Resolved]
  - External ear inflammation [Recovered/Resolved]
  - Seasonal allergy [Not Recovered/Not Resolved]
  - Diarrhoea [Recovered/Resolved]
  - Nasopharyngitis [Recovered/Resolved]
  - Nasopharyngitis [Recovered/Resolved]
  - Intervertebral disc protrusion [Not Recovered/Not Resolved]
  - Chronic gastritis [Recovered/Resolved]
  - Influenza [Recovered/Resolved]
  - Dental caries [Recovered/Resolved]

NARRATIVE: CASE EVENT DATE: 20071208
